FAERS Safety Report 18356838 (Version 1)
Quarter: 2020Q4

REPORT INFORMATION
  Report Type: Spontaneous
  Country: CN (occurrence: CN)
  Receive Date: 20201007
  Receipt Date: 20201007
  Transmission Date: 20210114
  Serious: Yes (Hospitalization, Other)
  Sender: FDA-Public Use
  Company Number: CN-JNJFOC-20200949689

PATIENT
  Age: 75 Year
  Sex: Female
  Weight: 62 kg

DRUGS (3)
  1. CLOPIDOGREL HYDROGEN SULFATE [Interacting]
     Active Substance: CLOPIDOGREL BISULFATE
     Indication: ARTERIOSCLEROSIS CORONARY ARTERY
     Dosage: 75 MG, QD
     Route: 048
     Dates: start: 20200515, end: 20200829
  2. XARELTO [Suspect]
     Active Substance: RIVAROXABAN
     Indication: ANTIPLATELET THERAPY
     Dosage: 10 MG, QD
     Route: 048
     Dates: start: 20200515, end: 20200826
  3. ACETYLSALICYLIC ACID [Interacting]
     Active Substance: ASPIRIN
     Indication: ISCHAEMIC HEART DISEASE PROPHYLAXIS
     Dosage: 100 MG, QD
     Route: 048
     Dates: start: 20200515, end: 20200714

REACTIONS (5)
  - Chest discomfort [Unknown]
  - Gastrointestinal haemorrhage [Recovering/Resolving]
  - Tachypnoea [Unknown]
  - Contraindicated product administered [Unknown]
  - Labelled drug-drug interaction medication error [Unknown]

NARRATIVE: CASE EVENT DATE: 20200515
